FAERS Safety Report 4732838-5 (Version None)
Quarter: 2005Q3

REPORT INFORMATION
  Report Type: 
  Country: None (occurrence: None)
  Receive Date: 20050803
  Receipt Date: 20050720
  Transmission Date: 20060218
  Serious: No
  Sender: FDA-Public Use
  Company Number: 200512134JP

PATIENT
  Age: 57 Year
  Sex: Male

DRUGS (4)
  1. ALLEGRA [Suspect]
     Indication: URTICARIA CHRONIC
     Dates: start: 20050405, end: 20050406
  2. NORVASK [Concomitant]
  3. NU-LOTAN [Concomitant]
  4. GASTER [Concomitant]

REACTIONS (2)
  - DERMATITIS [None]
  - DIZZINESS [None]
